FAERS Safety Report 9371438 (Version 3)
Quarter: 2015Q2

REPORT INFORMATION
  Report Type: Spontaneous
  Country: FR (occurrence: FR)
  Receive Date: 20130627
  Receipt Date: 20150504
  Transmission Date: 20150821
  Serious: Yes (Other)
  Sender: FDA-Public Use
  Company Number: FR-JNJFOC-20111105909

PATIENT
  Age: 37 Year
  Sex: Female

DRUGS (2)
  1. LOCAL HAEMOSTATICS [Suspect]
     Active Substance: UNSPECIFIED INGREDIENT
     Indication: HEPATECTOMY
     Route: 050
  2. QUIXIL [Suspect]
     Active Substance: FIBRINOGEN HUMAN\THROMBIN HUMAN
     Indication: HEPATECTOMY
     Route: 050
     Dates: start: 20090410, end: 20090410

REACTIONS (4)
  - Air embolism [Recovered/Resolved]
  - Circulatory collapse [Recovered/Resolved]
  - Intentional product misuse [Recovered/Resolved]
  - Oxygen saturation decreased [Recovered/Resolved]

NARRATIVE: CASE EVENT DATE: 20090410
